FAERS Safety Report 5922452-8 (Version None)
Quarter: 2008Q4

REPORT INFORMATION
  Report Type: 
  Country: None (occurrence: None)
  Receive Date: 20081017
  Receipt Date: 20081010
  Transmission Date: 20090506
  Serious: Yes (Other)
  Sender: FDA-Public Use
  Company Number: JP-ASTRAZENECA-2008SE04817

PATIENT
  Age: 59 Year
  Sex: Female
  Weight: 69 kg

DRUGS (4)
  1. AMIAS [Suspect]
     Indication: HYPERTENSION
     Route: 048
     Dates: start: 20080107
  2. PROPRANOLOL [Concomitant]
     Indication: HYPERTENSION
     Route: 048
     Dates: start: 19961118
  3. RAMIPRIL [Concomitant]
     Indication: HYPERTENSION
     Route: 048
     Dates: start: 20071116, end: 20080107
  4. SIMVASTATIN [Concomitant]
     Route: 048
     Dates: start: 20060919

REACTIONS (1)
  - INFLUENZA LIKE ILLNESS [None]
